FAERS Safety Report 7352265-4 (Version None)
Quarter: 2011Q1

REPORT INFORMATION
  Report Type: 
  Country: None (occurrence: None)
  Receive Date: 20110315
  Receipt Date: 20110309
  Transmission Date: 20110831
  Serious: Yes (Hospitalization)
  Sender: FDA-Public Use
  Company Number: DE-BRISTOL-MYERS SQUIBB COMPANY-15542111

PATIENT
  Age: 56 Year
  Sex: Male
  Weight: 73 kg

DRUGS (3)
  1. ABILIFY [Suspect]
     Indication: BIPOLAR DISORDER
     Dosage: FIRST REDUCED THEN DISCONTINUED
     Route: 048
     Dates: start: 20101201, end: 20110210
  2. SEROQUEL [Suspect]
     Dosage: THEN INCREASED TO 150 MG
     Route: 048
     Dates: start: 20100601
  3. ERGENYL [Suspect]
     Indication: BIPOLAR DISORDER
     Dosage: 1 DF = 1200 UNIT NOS
     Route: 048
     Dates: start: 20101201

REACTIONS (2)
  - BLOOD CHLORIDE DECREASED [None]
  - HYPONATRAEMIA [None]
